FAERS Safety Report 6035858-6 (Version None)
Quarter: 2009Q1

REPORT INFORMATION
  Report Type: 
  Country: None (occurrence: None)
  Receive Date: 20090113
  Receipt Date: 20090106
  Transmission Date: 20090719
  Serious: Yes (Hospitalization)
  Sender: FDA-Public Use
  Company Number: US-GENENTECH-275130

PATIENT
  Sex: Male
  Weight: 74.3 kg

DRUGS (4)
  1. RANIBIZUMAB [Suspect]
     Indication: MACULAR OEDEMA
     Dosage: 0.3 MG, 1/MONTH
     Route: 031
     Dates: start: 20080408
  2. METFORMIN [Concomitant]
     Indication: TYPE 2 DIABETES MELLITUS
  3. GLYBURIDE [Concomitant]
     Indication: TYPE 2 DIABETES MELLITUS
  4. LISINOPRIL [Concomitant]
     Indication: HYPERTENSION

REACTIONS (1)
  - DEEP VEIN THROMBOSIS [None]
